FAERS Safety Report 4934292-7 (Version None)
Quarter: 2006Q1

REPORT INFORMATION
  Report Type: 
  Country: None (occurrence: None)
  Receive Date: 20060303
  Receipt Date: 20060217
  Transmission Date: 20060701
  Serious: Yes (Hospitalization, Disabling)
  Sender: FDA-Public Use
  Company Number: 345207

PATIENT
  Age: 24 Year
  Sex: Male
  Weight: 73.5 kg

DRUGS (1)
  1. ACCUTANE [Suspect]
     Indication: ACNE
     Dosage: 40 MG 2 PER DAY ORAL
     Route: 048
     Dates: start: 19950622, end: 19951019

REACTIONS (38)
  - ABDOMINAL ABSCESS [None]
  - ADHESION [None]
  - ANAL FISTULA [None]
  - ANAL ULCER [None]
  - ANGER [None]
  - ANOREXIA [None]
  - ARTHRALGIA [None]
  - BLOOD CHOLESTEROL INCREASED [None]
  - CHAPPED LIPS [None]
  - CHOLELITHIASIS [None]
  - COLITIS ULCERATIVE [None]
  - DEHYDRATION [None]
  - DIFFICULTY IN WALKING [None]
  - DRUG TOXICITY [None]
  - DUODENAL ULCER [None]
  - FAECAL INCONTINENCE [None]
  - FATIGUE [None]
  - GASTRITIS [None]
  - GASTROENTERITIS [None]
  - HIATUS HERNIA [None]
  - HYPOGLYCAEMIA [None]
  - ILEITIS [None]
  - ILL-DEFINED DISORDER [None]
  - INFLAMMATORY BOWEL DISEASE [None]
  - INSOMNIA [None]
  - INTESTINAL ANASTOMOSIS [None]
  - INTESTINAL OBSTRUCTION [None]
  - LEUKOCYTOSIS [None]
  - OCULAR HYPERAEMIA [None]
  - PERIRECTAL ABSCESS [None]
  - POUCHITIS [None]
  - PROCTALGIA [None]
  - RECTAL ABSCESS [None]
  - RECTAL DISCHARGE [None]
  - RECTAL HAEMORRHAGE [None]
  - SEROSITIS [None]
  - STRESS [None]
  - WEIGHT DECREASED [None]
